FAERS Safety Report 5197651-6 (Version None)
Quarter: 2007Q1

REPORT INFORMATION
  Report Type: 
  Country: None (occurrence: None)
  Receive Date: 20070103
  Receipt Date: 20061222
  Transmission Date: 20070707
  Serious: Yes (Hospitalization)
  Sender: FDA-Public Use
  Company Number: AU-PFIZER INC-2006153734

PATIENT
  Sex: Male
  Weight: 73 kg

DRUGS (3)
  1. ZAVEDOS POWDER, STERILE [Suspect]
     Indication: ACUTE MYELOID LEUKAEMIA
     Route: 042
     Dates: start: 20061109, end: 20061110
  2. CYTARABINE [Suspect]
     Indication: ACUTE MYELOID LEUKAEMIA
     Route: 042
     Dates: start: 20061109, end: 20061113
  3. ETOPOSIDE [Suspect]
     Indication: ACUTE MYELOID LEUKAEMIA
     Route: 042
     Dates: start: 20061109, end: 20061113

REACTIONS (3)
  - ABDOMINAL PAIN [None]
  - PANCYTOPENIA [None]
  - SUNBURN [None]
